FAERS Safety Report 23689128 (Version 2)
Quarter: 2024Q2

REPORT INFORMATION
  Report Type: Spontaneous
  Country: CA (occurrence: CA)
  Receive Date: 20240330
  Receipt Date: 20240413
  Transmission Date: 20240715
  Serious: Yes (Other)
  Sender: FDA-Public Use
  Company Number: CA-TEVA-VS-3174798

PATIENT
  Age: 6 Month
  Sex: Female

DRUGS (7)
  1. DOXORUBICIN [Suspect]
     Active Substance: DOXORUBICIN
     Indication: Atypical teratoid/rhabdoid tumour of CNS
     Dosage: CHEMOTHERAPY (DFCI-IRS-III, MODIFED PROTOCOL)
     Route: 065
  2. METHOTREXATE [Suspect]
     Active Substance: METHOTREXATE
     Indication: Atypical teratoid/rhabdoid tumour of CNS
     Route: 037
  3. ACTINOMYCIN D [Suspect]
     Active Substance: DACTINOMYCIN
     Indication: Atypical teratoid/rhabdoid tumour of CNS
     Dosage: CHEMOTHERAPY (DFCI-IRS-III, MODIFED PROTOCOL)
     Route: 065
  4. HYDROCORTISONE [Suspect]
     Active Substance: HYDROCORTISONE
     Indication: Atypical teratoid/rhabdoid tumour of CNS
     Route: 037
  5. CYTARABINE [Suspect]
     Active Substance: CYTARABINE
     Indication: Atypical teratoid/rhabdoid tumour of CNS
     Route: 037
  6. ETOPOSIDE [Suspect]
     Active Substance: ETOPOSIDE
     Indication: Atypical teratoid/rhabdoid tumour of CNS
     Dosage: CHEMOTHERAPY (DFCI-IRS-III, MODIFED PROTOCOL)
     Route: 065
  7. ALISERTIB [Suspect]
     Active Substance: ALISERTIB
     Indication: Atypical teratoid/rhabdoid tumour of CNS
     Dosage: ONCE DAILY FOR 7 DAYS OF A 21 DAY TREATMENT CYCLE
     Route: 048

REACTIONS (6)
  - Somnolence [Recovering/Resolving]
  - Speech disorder developmental [Recovering/Resolving]
  - Drug ineffective [Unknown]
  - Neutropenia [Recovering/Resolving]
  - Hemiparesis [Recovering/Resolving]
  - Deafness [Recovering/Resolving]
